FAERS Safety Report 6254304-0 (Version None)
Quarter: 2009Q3

REPORT INFORMATION
  Report Type: 
  Country: None (occurrence: None)
  Receive Date: 20090701
  Receipt Date: 20090701
  Transmission Date: 20100115
  Serious: Yes (Death)
  Sender: FDA-Public Use
  Company Number: None

PATIENT
  Age: 81 Year
  Sex: Female

DRUGS (1)
  1. AZITHROMYCIN [Suspect]
     Dosage: PO
     Route: 048
     Dates: start: 20090425, end: 20090429

REACTIONS (5)
  - BACTERIA STOOL IDENTIFIED [None]
  - CLOSTRIDIUM DIFFICILE COLITIS [None]
  - DEHYDRATION [None]
  - ENTEROCOCCAL INFECTION [None]
  - RENAL FAILURE ACUTE [None]
